FAERS Safety Report 6302820-5 (Version None)
Quarter: 2009Q3

REPORT INFORMATION
  Report Type: 
  Country: None (occurrence: None)
  Receive Date: 20090810
  Receipt Date: 20090805
  Transmission Date: 20100115
  Serious: Yes (Hospitalization)
  Sender: FDA-Public Use
  Company Number: FR-WYE-G04189309

PATIENT
  Sex: Male

DRUGS (15)
  1. TAZOCILLINE [Suspect]
     Route: 042
     Dates: start: 20090613, end: 20090601
  2. TRIFLUCAN [Suspect]
     Indication: MUCOSAL INFLAMMATION
     Dosage: UNKNOWN
     Route: 048
     Dates: start: 20090613, end: 20090616
  3. NOXAFIL [Suspect]
     Indication: ANTIFUNGAL PROPHYLAXIS
     Route: 048
     Dates: start: 20090617, end: 20090624
  4. NOXAFIL [Suspect]
     Dosage: OVERDOSE AMOUNT WAS 400 MG 3 TIMES PER DAY
     Route: 048
     Dates: start: 20090625, end: 20090630
  5. AMBISOME [Suspect]
     Dosage: UNKNOWN
     Route: 042
     Dates: start: 20090101, end: 20090616
  6. MORPHINE [Suspect]
     Dosage: 150 MG TOTAL DAILY
     Route: 042
     Dates: start: 20090610
  7. NICARDIPINE HCL [Suspect]
     Dosage: UNKNOWN
     Route: 048
  8. PENTACARINAT [Suspect]
     Dosage: 300 MG
     Route: 055
     Dates: start: 20090603, end: 20090603
  9. FLUDARABINE PHOSPHATE [Suspect]
     Route: 042
     Dates: start: 20090529, end: 20090531
  10. ALKERAN [Suspect]
     Dosage: 1 UNKNOWN DOSE
     Route: 042
     Dates: start: 20090601, end: 20090601
  11. METHOTREXATE [Suspect]
     Route: 042
     Dates: start: 20090604, end: 20090609
  12. VANCOMYCIN [Suspect]
     Dosage: UNKNOWN
     Route: 042
     Dates: start: 20090611, end: 20090601
  13. PRIMPERAN [Suspect]
     Dosage: UNKNOWN DOSE, ON DEMAND
     Route: 051
  14. FLAGYL [Suspect]
     Dosage: UNKNOWN
     Route: 048
     Dates: start: 20090615, end: 20090601
  15. VELCADE [Suspect]
     Indication: MULTIPLE MYELOMA
     Dosage: UNKNOWN
     Route: 042
     Dates: start: 20080715, end: 20090531

REACTIONS (4)
  - ACCIDENTAL OVERDOSE [None]
  - ACUTE GRAFT VERSUS HOST DISEASE [None]
  - CHOLESTASIS [None]
  - CYTOLYTIC HEPATITIS [None]
